FAERS Safety Report 12249343 (Version 1)
Quarter: 2016Q2

REPORT INFORMATION
  Report Type: Spontaneous
  Country: US (occurrence: None)
  Receive Date: 20160407
  Receipt Date: 20160407
  Transmission Date: 20160815
  Serious: Yes (Hospitalization)
  Sender: FDA-Public Use
  Company Number: None

PATIENT
  Age: 40 Year
  Sex: Female
  Weight: 107.6 kg

DRUGS (1)
  1. ACETAMINOPHEN/PYRILAMINE MALEATE [Suspect]
     Active Substance: ACETAMINOPHEN\PYRILAMINE MALEATE
     Indication: MUSCLE SPASMS
     Dates: start: 20160329, end: 20160329

REACTIONS (3)
  - Urticaria [None]
  - Rash [None]
  - Pruritus [None]

NARRATIVE: CASE EVENT DATE: 20160330
